FAERS Safety Report 6170265-7 (Version None)
Quarter: 2009Q2

REPORT INFORMATION
  Report Type: 
  Country: None (occurrence: None)
  Receive Date: 20090427
  Receipt Date: 20090427
  Transmission Date: 20091009
  Serious: No
  Sender: FDA-Public Use
  Company Number: None

PATIENT

DRUGS (1)
  1. BUPROPION HCL [Suspect]
     Indication: MAJOR DEPRESSION
     Dosage: 300 MG PO QAM
     Route: 048

REACTIONS (4)
  - DRUG DOSE OMISSION [None]
  - HOT FLUSH [None]
  - PRODUCT SUBSTITUTION ISSUE [None]
  - THINKING ABNORMAL [None]
